FAERS Safety Report 13255991 (Version 1)
Quarter: 2017Q1

REPORT INFORMATION
  Report Type: Spontaneous
  Country: US (occurrence: US)
  Receive Date: 20170219
  Receipt Date: 20170219
  Transmission Date: 20170428
  Serious: Yes (Disabling, Other)
  Sender: FDA-Public Use
  Company Number: None

PATIENT
  Age: 20 Year
  Sex: Male
  Weight: 76.5 kg

DRUGS (6)
  1. STRATTERA [Concomitant]
     Active Substance: ATOMOXETINE HYDROCHLORIDE
  2. TAMIFLU [Suspect]
     Active Substance: OSELTAMIVIR PHOSPHATE
     Indication: INFLUENZA
     Dosage: ?          QUANTITY:10 CAPSULE(S); TWICE A DYA ORAL?
     Route: 048
     Dates: start: 20170206, end: 20170210
  3. SEROQUEL [Concomitant]
     Active Substance: QUETIAPINE FUMARATE
  4. CLONIDINE. [Concomitant]
     Active Substance: CLONIDINE
  5. COGENTINE [Concomitant]
  6. LAMICTAL [Concomitant]
     Active Substance: LAMOTRIGINE

REACTIONS (8)
  - Condition aggravated [None]
  - Confusional state [None]
  - Movement disorder [None]
  - Autism [None]
  - Dysarthria [None]
  - Impaired driving ability [None]
  - Speech disorder [None]
  - Decreased eye contact [None]

NARRATIVE: CASE EVENT DATE: 20170216
